FAERS Safety Report 7586217-6 (Version None)
Quarter: 2011Q3

REPORT INFORMATION
  Report Type: 
  Country: None (occurrence: None)
  Receive Date: 20110701
  Receipt Date: 20110624
  Transmission Date: 20111222
  Serious: Yes (Other)
  Sender: FDA-Public Use
  Company Number: CHPA2011US08448

PATIENT
  Age: 66 Year
  Sex: Male
  Weight: 72.562 kg

DRUGS (2)
  1. EYE DROPS [Concomitant]
     Dosage: UNK, UNK
  2. LAMISIL AT [Suspect]
     Indication: FUNGAL INFECTION
     Dosage: UNK, UNK
     Route: 061

REACTIONS (3)
  - OFF LABEL USE [None]
  - THERAPEUTIC RESPONSE UNEXPECTED [None]
  - EYE OPERATION [None]
